FAERS Safety Report 7906255-0 (Version None)
Quarter: 2011Q4

REPORT INFORMATION
  Report Type: 
  Country: None (occurrence: None)
  Receive Date: 20111110
  Receipt Date: 20101026
  Transmission Date: 20120403
  Serious: No
  Sender: FDA-Public Use
  Company Number: US-BAYER-201040555NA

PATIENT
  Sex: Female

DRUGS (1)
  1. CLIMARA [Suspect]
     Dosage: 0.1 MG, BIW
     Route: 062

REACTIONS (5)
  - PRODUCT ADHESION ISSUE [None]
  - APPLICATION SITE IRRITATION [None]
  - MOOD ALTERED [None]
  - TEARFULNESS [None]
  - IMPATIENCE [None]
